FAERS Safety Report 25272196 (Version 1)
Quarter: 2025Q2

REPORT INFORMATION
  Report Type: Spontaneous
  Country: US (occurrence: US)
  Receive Date: 20250506
  Receipt Date: 20250506
  Transmission Date: 20250717
  Serious: No
  Sender: ALCON
  Company Number: US-ALCON LABORATORIES-ALC2025US001126

PATIENT
  Sex: Female

DRUGS (1)
  1. ROCKLATAN [Suspect]
     Active Substance: LATANOPROST\NETARSUDIL MESYLATE
     Indication: Intraocular pressure fluctuation
     Route: 047
     Dates: start: 20250214, end: 20250215

REACTIONS (8)
  - Product packaging difficult to open [Unknown]
  - Product dose omission issue [Unknown]
  - Patient dissatisfaction with treatment [Unknown]
  - Norovirus infection [Recovering/Resolving]
  - Intraocular pressure increased [Recovering/Resolving]
  - Visual impairment [Recovering/Resolving]
  - Ocular hyperaemia [Recovered/Resolved]
  - Eye pain [Recovered/Resolved]
